FAERS Safety Report 4808857-7 (Version None)
Quarter: 2005Q4

REPORT INFORMATION
  Report Type: 
  Country: None (occurrence: None)
  Receive Date: 20051021
  Receipt Date: 20040625
  Transmission Date: 20060501
  Serious: No
  Sender: FDA-Public Use
  Company Number: DE_040613861

PATIENT
  Age: 26 Year
  Sex: Male

DRUGS (2)
  1. ZYPREXA [Suspect]
     Indication: SCHIZOPHRENIA
     Dosage: 15 MG/1 IN THE EVENING
     Dates: start: 20040501
  2. LORAZEPAM [Concomitant]

REACTIONS (6)
  - HEADACHE [None]
  - HYPERHIDROSIS [None]
  - INFECTION [None]
  - PHARYNGEAL ERYTHEMA [None]
  - PYREXIA [None]
  - WHITE BLOOD CELL COUNT DECREASED [None]
